FAERS Safety Report 24362878 (Version 1)
Quarter: 2024Q3

REPORT INFORMATION
  Report Type: Spontaneous
  Country: US (occurrence: None)
  Receive Date: 20240925
  Receipt Date: 20240925
  Transmission Date: 20241017
  Serious: Yes (unspecified)
  Sender: Public
  Company Number: None

PATIENT
  Age: 69 Year
  Sex: Male

DRUGS (1)
  1. PIRFENIDONE [Suspect]
     Active Substance: PIRFENIDONE
     Indication: Idiopathic pulmonary fibrosis
     Dosage: FREQUENCY : 3 TIMES A DAY;?
     Route: 048
     Dates: start: 20240709, end: 20240909

REACTIONS (12)
  - Rash pruritic [None]
  - Rash erythematous [None]
  - Photosensitivity reaction [None]
  - Joint swelling [None]
  - Drug ineffective [None]
  - Skin exfoliation [None]
  - Blister [None]
  - Sunburn [None]
  - Skin discolouration [None]
  - Stevens-Johnson syndrome [None]
  - Scar [None]
  - Therapy cessation [None]

NARRATIVE: CASE EVENT DATE: 20240909
